FAERS Safety Report 4630851-X (Version None)
Quarter: 2005Q2

REPORT INFORMATION
  Report Type: 
  Country: None (occurrence: None)
  Receive Date: 20050404
  Receipt Date: 20050404
  Transmission Date: 20051028
  Serious: Yes (Disabling)
  Sender: FDA-Public Use
  Company Number: None

PATIENT
  Age: 37 Year
  Sex: Male
  Weight: 92 kg

DRUGS (1)
  1. DICLOFENAC SODIUM [Suspect]
     Indication: PREMATURE EJACULATION
     Dosage: 100 MG ORALLY DAILY FOR 9 DAYS
     Route: 048
     Dates: start: 20020515, end: 20020523

REACTIONS (2)
  - PREMATURE EJACULATION [None]
  - THERAPEUTIC RESPONSE UNEXPECTED [None]
